FAERS Safety Report 11211293 (Version 1)
Quarter: 2015Q2

REPORT INFORMATION
  Report Type: Spontaneous
  Country: US (occurrence: None)
  Receive Date: 20150619
  Receipt Date: 20150619
  Transmission Date: 20150821
  Serious: Yes (Hospitalization)
  Sender: FDA-Public Use
  Company Number: None

PATIENT
  Age: 74 Year
  Sex: Male
  Weight: 118.4 kg

DRUGS (13)
  1. IBUPROFEN. [Suspect]
     Active Substance: IBUPROFEN
     Dosage: 800MG  PO  PRN?CHRONIC
     Route: 048
  2. KLOR-CON [Suspect]
     Active Substance: POTASSIUM CHLORIDE
     Indication: BLOOD POTASSIUM ABNORMAL
     Dosage: 60MEQ  DAILY  PO?CHRONIC
     Route: 048
  3. NORCO [Concomitant]
     Active Substance: ACETAMINOPHEN\HYDROCODONE BITARTRATE
  4. DELTASONE [Concomitant]
     Active Substance: PREDNISONE
  5. MIRALAX [Concomitant]
     Active Substance: POLYETHYLENE GLYCOL 3350
  6. OSCAL [Concomitant]
     Active Substance: CALCIUM CARBONATE
  7. FUROSEMIDE. [Concomitant]
     Active Substance: FUROSEMIDE
  8. CA VITD [Concomitant]
  9. ALDACTONE [Suspect]
     Active Substance: SPIRONOLACTONE
     Indication: CARDIAC FAILURE CONGESTIVE
     Dosage: 50MG  BID  PO?CHRONIC
     Route: 048
  10. NEURONTIN [Suspect]
     Active Substance: GABAPENTIN
     Dosage: 300MG  PO  TID?CHRONIC
     Route: 048
  11. PERCOCET [Concomitant]
     Active Substance: ACETAMINOPHEN\OXYCODONE HYDROCHLORIDE
  12. FERROUS SULFATE [Concomitant]
     Active Substance: FERROUS SULFATE\FERROUS SULFATE, DRIED
  13. MVI [Concomitant]
     Active Substance: VITAMINS

REACTIONS (2)
  - Cardiac failure congestive [None]
  - Hyperkalaemia [None]

NARRATIVE: CASE EVENT DATE: 20141107
